FAERS Safety Report 13612978 (Version 2)
Quarter: 2017Q2

REPORT INFORMATION
  Report Type: Report from Study
  Country: CN (occurrence: CN)
  Receive Date: 20170605
  Receipt Date: 20170613
  Transmission Date: 20170830
  Serious: Yes (Death, Other)
  Sender: FDA-Public Use
  Company Number: CN-ASTELLAS-2017US020932

PATIENT
  Sex: Female

DRUGS (1)
  1. ERLOTINIB [Suspect]
     Active Substance: ERLOTINIB
     Indication: NON-SMALL CELL LUNG CANCER
     Route: 048
     Dates: start: 20150721

REACTIONS (7)
  - Vomiting [Recovering/Resolving]
  - Discomfort [Unknown]
  - Dizziness [Recovering/Resolving]
  - Ligament sprain [Unknown]
  - Injury [Recovering/Resolving]
  - Fracture [Unknown]
  - Fall [Unknown]
